FAERS Safety Report 9496158 (Version 1)
Quarter: 2013Q3

REPORT INFORMATION
  Report Type: Spontaneous
  Country: CN (occurrence: None)
  Receive Date: 20130829
  Receipt Date: 20130829
  Transmission Date: 20140515
  Serious: Yes (Other)
  Sender: FDA-Public Use
  Company Number: SYM-2013-09983

PATIENT
  Sex: 0

DRUGS (3)
  1. FLUOROURACIL (FLUOROURACIL) (SOLUTION FOR INFUSION) (FLUOROURACIL) [Suspect]
     Indication: NEUROENDOCRINE CARCINOMA
  2. LEUCOVORIN (FOLINIC ACID) (FOLINIC ACID) [Suspect]
     Indication: NEUROENDOCRINE CARCINOMA
  3. IRINOTECAN (IRINOTECAN) (IRINOTECAN) [Suspect]
     Indication: NEUROENDOCRINE CARCINOMA

REACTIONS (1)
  - Cholinergic syndrome [None]
